FAERS Safety Report 10682147 (Version 1)
Quarter: 2014Q4

REPORT INFORMATION
  Report Type: Spontaneous
  Country: IT (occurrence: None)
  Receive Date: 20141224
  Receipt Date: 20141224
  Transmission Date: 20150529
  Serious: Yes (Hospitalization)
  Sender: FDA-Public Use
  Company Number: IT-20140141

PATIENT
  Age: 24 Year
  Sex: Female

DRUGS (3)
  1. BENTELAN (BETAMETHASONE SODIUM PHOSPHATE) [Concomitant]
  2. DOTAREM [Suspect]
     Active Substance: GADOTERATE MEGLUMINE
     Indication: NUCLEAR MAGNETIC RESONANCE IMAGING
     Route: 042
     Dates: start: 20141210, end: 20141210
  3. TRIMETON (CHLORPHENIRAMINE MALEATE) [Concomitant]

REACTIONS (2)
  - Dyspnoea [None]
  - Erythema [None]

NARRATIVE: CASE EVENT DATE: 20141210
